FAERS Safety Report 4698683-4 (Version None)
Quarter: 2005Q2

REPORT INFORMATION
  Report Type: 
  Country: None (occurrence: None)
  Receive Date: 20050622
  Receipt Date: 20050428
  Transmission Date: 20051028
  Serious: No
  Sender: FDA-Public Use
  Company Number: SU-2005-003510

PATIENT
  Age: 31 Year
  Sex: Male
  Weight: 74.8435 kg

DRUGS (3)
  1. BENICAR HCT [Suspect]
     Indication: HYPERTENSION
     Dosage: 20.125 MG BID PO
     Route: 048
     Dates: start: 20050401
  2. ATENOLOL [Concomitant]
  3. INSPRA [Concomitant]

REACTIONS (1)
  - BACK PAIN [None]
